FAERS Safety Report 6340694-7 (Version None)
Quarter: 2009Q3

REPORT INFORMATION
  Report Type: 
  Country: None (occurrence: None)
  Receive Date: 20090904
  Receipt Date: 20070919
  Transmission Date: 20100115
  Serious: Yes (Hospitalization, Other)
  Sender: FDA-Public Use
  Company Number: US-ASTRAZENECA-2006UW23613

PATIENT
  Age: 14877 Day
  Sex: Female
  Weight: 87.1 kg

DRUGS (6)
  1. SEROQUEL [Suspect]
     Indication: AGORAPHOBIA
     Dosage: 75-400 MG
     Route: 048
     Dates: start: 20020806
  2. SEROQUEL [Suspect]
     Route: 048
     Dates: start: 20030501
  3. PAXIL [Concomitant]
     Dosage: 20-60 MG
     Route: 048
     Dates: start: 20020806
  4. TRAZODONE [Concomitant]
     Dosage: 100-200 MG
     Route: 048
     Dates: start: 20020806
  5. GEMFIBROZIL [Concomitant]
     Dates: start: 20020806
  6. CLONAZEPAM [Concomitant]
     Dates: start: 20020806

REACTIONS (9)
  - DIABETES MELLITUS [None]
  - DIABETES MELLITUS INADEQUATE CONTROL [None]
  - GALLBLADDER DISORDER [None]
  - HEPATIC STEATOSIS [None]
  - LIMB DEFORMITY [None]
  - LIVER DISORDER [None]
  - LIVER FUNCTION TEST ABNORMAL [None]
  - OBESITY [None]
  - TYPE 2 DIABETES MELLITUS [None]
